FAERS Safety Report 7988670-2 (Version None)
Quarter: 2011Q4

REPORT INFORMATION
  Report Type: 
  Country: None (occurrence: None)
  Receive Date: 20111218
  Receipt Date: 20111205
  Transmission Date: 20120403
  Serious: Yes (Life-Threatening, Hospitalization, Other)
  Sender: FDA-Public Use
  Company Number: FR-ELI_LILLY_AND_COMPANY-FR201110006359

PATIENT
  Sex: Male

DRUGS (8)
  1. IMOVANE [Concomitant]
     Indication: DEPRESSION
     Route: 048
  2. EFFEXOR [Concomitant]
     Indication: DEPRESSION
  3. VALIUM [Concomitant]
     Indication: DEPRESSION
     Route: 048
  4. CYMBALTA [Suspect]
     Indication: DEPRESSION
     Dosage: 60 MG, QD
     Route: 048
     Dates: start: 20110824, end: 20110923
  5. CHLORPROMAZINE HCL [Concomitant]
     Indication: DEPRESSION
  6. TEGRETOL [Concomitant]
     Indication: EPILEPSY
     Dosage: UNK
     Dates: start: 20110824, end: 20110901
  7. URBANYL [Concomitant]
     Indication: EPILEPSY
  8. AOTAL [Concomitant]
     Indication: ALCOHOLISM
     Dosage: 333 MG, UNKNOWN
     Route: 048

REACTIONS (6)
  - TOXIC EPIDERMAL NECROLYSIS [None]
  - BLOOD CREATINE PHOSPHOKINASE INCREASED [None]
  - ASPARTATE AMINOTRANSFERASE INCREASED [None]
  - C-REACTIVE PROTEIN INCREASED [None]
  - GAMMA-GLUTAMYLTRANSFERASE INCREASED [None]
  - ALANINE AMINOTRANSFERASE INCREASED [None]
